FAERS Safety Report 6028794-2 (Version None)
Quarter: 2009Q1

REPORT INFORMATION
  Report Type: 
  Country: None (occurrence: None)
  Receive Date: 20090106
  Receipt Date: 20081231
  Transmission Date: 20090719
  Serious: Yes (Hospitalization)
  Sender: FDA-Public Use
  Company Number: B0552519A

PATIENT
  Age: 46 Year
  Sex: Female

DRUGS (2)
  1. LAPATINIB [Suspect]
     Dosage: 1250MG PER DAY
     Route: 048
     Dates: start: 20080402
  2. CAPECITABINE [Suspect]
     Dosage: 1150MG TWICE PER DAY
     Route: 048
     Dates: start: 20080402

REACTIONS (2)
  - ASTHENIA [None]
  - VOMITING [None]
